FAERS Safety Report 10196150 (Version 1)
Quarter: 2014Q2

REPORT INFORMATION
  Report Type: Spontaneous
  Country: IL (occurrence: IL)
  Receive Date: 20140527
  Receipt Date: 20140527
  Transmission Date: 20141212
  Serious: Yes (Death)
  Sender: FDA-Public Use
  Company Number: IL-CELGENEUS-082-POMAL-14052287

PATIENT
  Sex: Female

DRUGS (3)
  1. POMALYST [Suspect]
     Indication: PLASMA CELL MYELOMA
     Route: 048
     Dates: start: 201404
  2. CARFILZOMIB [Concomitant]
     Indication: PLASMA CELL MYELOMA
     Route: 065
  3. CARFILZOMIB [Concomitant]
     Route: 065

REACTIONS (1)
  - Death [Fatal]
